FAERS Safety Report 4482066-6 (Version None)
Quarter: 2004Q4

REPORT INFORMATION
  Report Type: 
  Country: None (occurrence: None)
  Receive Date: 20041020
  Receipt Date: 20041006
  Transmission Date: 20050328
  Serious: Yes (Hospitalization)
  Sender: FDA-Public Use
  Company Number: US_0408104846

PATIENT
  Age: 33 Year
  Sex: Female

DRUGS (3)
  1. PERMAX [Suspect]
     Indication: PARKINSON'S DISEASE
     Dosage: 1.5 MG/3 DAY
     Dates: start: 20021201
  2. HYDROCORTISONE [Concomitant]
  3. LORAZEPAM [Concomitant]

REACTIONS (3)
  - DELUSION [None]
  - HYPOMANIA [None]
  - MANIA [None]
